FAERS Safety Report 23240657 (Version 1)
Quarter: 2023Q4

REPORT INFORMATION
  Report Type: Spontaneous
  Country: US (occurrence: US)
  Receive Date: 20231129
  Receipt Date: 20231129
  Transmission Date: 20240110
  Serious: Yes (Hospitalization, Other)
  Sender: FDA-Public Use
  Company Number: US-INDIVIOR UK LIMITED-INDV-141955-2023

PATIENT
  Age: 61 Year
  Sex: Female

DRUGS (1)
  1. BUPRENORPHINE [Suspect]
     Active Substance: BUPRENORPHINE
     Indication: Complex regional pain syndrome
     Dosage: UNK
     Route: 042

REACTIONS (7)
  - Post infection glomerulonephritis [Unknown]
  - Coma [Unknown]
  - Brain herniation [Unknown]
  - Subdural haematoma [Unknown]
  - Bacteraemia [Unknown]
  - Rash macular [Recovered/Resolved]
  - Cellulitis [Unknown]
